FAERS Safety Report 5129085-4 (Version None)
Quarter: 2006Q4

REPORT INFORMATION
  Report Type: 
  Country: None (occurrence: None)
  Receive Date: 20061016
  Receipt Date: 20061016
  Transmission Date: 20070319
  Serious: No
  Sender: FDA-Public Use
  Company Number: None

PATIENT

DRUGS (1)
  1. ANUCORT HC    25MG    G+W [Suspect]
     Dosage: 25MG      RECTAL
     Route: 054

REACTIONS (1)
  - MEDICATION ERROR [None]
